FAERS Safety Report 18220948 (Version 2)
Quarter: 2020Q3

REPORT INFORMATION
  Report Type: Spontaneous
  Country: US (occurrence: US)
  Receive Date: 20200902
  Receipt Date: 20200909
  Transmission Date: 20201103
  Serious: Yes (Other)
  Sender: FDA-Public Use
  Company Number: US-CIPLA LTD.-2020US06078

PATIENT

DRUGS (6)
  1. ELIQUIS [Concomitant]
     Active Substance: APIXABAN
     Indication: ANTICOAGULANT THERAPY
     Dosage: 5 MILLIGRAM, QD
     Route: 065
     Dates: start: 2020
  2. LEVOTHYROXINE. [Concomitant]
     Active Substance: LEVOTHYROXINE
     Indication: THYROID DISORDER
     Dosage: 112 MICROGRAM, QD
     Route: 065
     Dates: start: 2020
  3. DILTIAZEM. [Concomitant]
     Active Substance: DILTIAZEM
     Indication: PRODUCT USED FOR UNKNOWN INDICATION
     Dosage: 180 MILLIGRAM, QD
     Route: 065
     Dates: start: 2020
  4. HYDRALAZINE [Concomitant]
     Active Substance: HYDRALAZINE HYDROCHLORIDE
     Indication: HYPERTENSION
     Dosage: 25 MILLIGRAM, BID
     Route: 065
     Dates: start: 2020
  5. ALENDRONATE [Suspect]
     Active Substance: ALENDRONATE SODIUM
     Indication: OSTEOPOROSIS PROPHYLAXIS
     Dosage: 70 MILLIGRAM, ONCE EVERY MONDAY
     Route: 048
     Dates: start: 202007, end: 20200820
  6. PREDNISONE. [Concomitant]
     Active Substance: PREDNISONE
     Indication: MYALGIA
     Dosage: 4 MG IN THE MORNING AND 5 MG AT NIGHT BEFORE BED
     Route: 065
     Dates: start: 2020

REACTIONS (1)
  - Muscle spasms [Recovered/Resolved]

NARRATIVE: CASE EVENT DATE: 202007
